FAERS Safety Report 4796681-3 (Version None)
Quarter: 2005Q4

REPORT INFORMATION
  Report Type: 
  Country: None (occurrence: None)
  Receive Date: 20051006
  Receipt Date: 20051006
  Transmission Date: 20060501
  Serious: Yes (Life-Threatening, Hospitalization)
  Sender: FDA-Public Use
  Company Number: None

PATIENT
  Age: 71 Year
  Sex: Female

DRUGS (8)
  1. HUMULIN 70/30 [Suspect]
     Indication: DIABETES MELLITUS INSULIN-DEPENDENT
     Dosage: 50 U SQ QAM, 30 U QPM
     Route: 058
  2. LOPRESSOR [Concomitant]
  3. CARDIZEM [Concomitant]
  4. LISINOPRIL [Concomitant]
  5. CELEBREX [Concomitant]
  6. LASIX/GLUCOPHAGE [Concomitant]
  7. WARFARIN SODIUM [Concomitant]
  8. NORVASC [Concomitant]

REACTIONS (4)
  - BLOOD GLUCOSE DECREASED [None]
  - DYSPNOEA [None]
  - FATIGUE [None]
  - HYPERHIDROSIS [None]
